FAERS Safety Report 5149218-3 (Version None)
Quarter: 2006Q4

REPORT INFORMATION
  Report Type: 
  Country: None (occurrence: None)
  Receive Date: 20061113
  Receipt Date: 20050901
  Transmission Date: 20070319
  Serious: No
  Sender: FDA-Public Use
  Company Number: 416388

PATIENT
  Age: 51 Year
  Sex: Male
  Weight: 104.5 kg

DRUGS (3)
  1. COREG [Suspect]
     Indication: HYPERTENSION
     Route: 048
     Dates: start: 20040620, end: 20040720
  2. HYDROCHLOROTHIAZIDE [Concomitant]
     Indication: DRUG USE FOR UNKNOWN INDICATION
     Dosage: 12.5MG UNKNOWN
     Route: 065
  3. LISINOPRIL [Concomitant]
     Indication: DRUG USE FOR UNKNOWN INDICATION
     Dosage: 20MG UNKNOWN
     Route: 065

REACTIONS (2)
  - ANXIETY [None]
  - PARANOIA [None]
